FAERS Safety Report 5356326-0 (Version None)
Quarter: 2007Q2

REPORT INFORMATION
  Report Type: 
  Country: None (occurrence: None)
  Receive Date: 20070530
  Receipt Date: 20061212
  Transmission Date: 20071010
  Serious: Yes (Hospitalization)
  Sender: FDA-Public Use
  Company Number: US200609003770

PATIENT
  Age: 66 Year
  Sex: Female
  Weight: 92.1 kg

DRUGS (1)
  1. ZYPREXA [Suspect]
     Dosage: 20 MG
     Dates: start: 20040101

REACTIONS (3)
  - ABDOMINAL PAIN [None]
  - HYPERTENSION [None]
  - PANCREATITIS [None]
